FAERS Safety Report 9798687 (Version 2)
Quarter: 2014Q1

REPORT INFORMATION
  Report Type: Spontaneous
  Country: GB (occurrence: None)
  Receive Date: 20131230
  Receipt Date: 20140122
  Transmission Date: 20141002
  Serious: Yes (Other)
  Sender: FDA-Public Use
  Company Number: KAD201312-001742

PATIENT
  Age: 42 Year
  Sex: Male

DRUGS (8)
  1. RIBAVIRIN (RIBAVIRIN) [Suspect]
     Indication: HEPATITIS C
     Route: 048
     Dates: start: 20131007
  2. PEGASYS (PEGINTERFERON ALFA-2A) [Suspect]
     Indication: HEPATITIS C
     Route: 058
     Dates: start: 20131007
  3. INCIVO (TELAPREVIR) [Suspect]
     Indication: HEPATITIS C
     Route: 048
     Dates: start: 20131007, end: 20131215
  4. DOSULEPIN (DOSULEPIN) [Concomitant]
  5. METOCLOPRAMIDE (METOCLOPRAMIDE) [Concomitant]
  6. PIRITON (CHLORPHENAMINE MALEATE) [Concomitant]
  7. SERETIDE (FLUTICASONE PROPIONATE MICRONISED, SALMETEROL XINAFOATE MICRONISED) [Concomitant]
  8. ZOPICLONE (ZOPICLONE) [Concomitant]

REACTIONS (2)
  - Blood creatinine increased [None]
  - Blood uric acid increased [None]
